FAERS Safety Report 19152337 (Version 1)
Quarter: 2021Q2

REPORT INFORMATION
  Report Type: Spontaneous
  Country: US (occurrence: US)
  Receive Date: 20210416
  Receipt Date: 20210416
  Transmission Date: 20210717
  Serious: No
  Sender: FDA-Public Use
  Company Number: None

PATIENT
  Age: 53 Year
  Sex: Female

DRUGS (4)
  1. SILDENAFIL. [Concomitant]
     Active Substance: SILDENAFIL
  2. WARFARIN [Concomitant]
     Active Substance: WARFARIN
  3. BOSENTAN. [Concomitant]
     Active Substance: BOSENTAN
  4. NITROFURANTOIN CAP 100MG [Suspect]
     Active Substance: NITROFURANTOIN
     Indication: URINARY TRACT INFECTION
     Dosage: OTHER FREQUENCY:OTHER;?
     Route: 048
     Dates: start: 20210415

REACTIONS (4)
  - Peripheral coldness [None]
  - Paraesthesia [None]
  - Feeling hot [None]
  - Hypoaesthesia [None]

NARRATIVE: CASE EVENT DATE: 20210415
